FAERS Safety Report 7471103-2 (Version None)
Quarter: 2011Q2

REPORT INFORMATION
  Report Type: 
  Country: None (occurrence: None)
  Receive Date: 20110510
  Receipt Date: 20110505
  Transmission Date: 20111010
  Serious: Yes (Hospitalization, Other)
  Sender: FDA-Public Use
  Company Number: US-ABBOTT-11P-163-0723972-00

PATIENT
  Sex: Female

DRUGS (1)
  1. HUMIRA [Suspect]
     Indication: CROHN'S DISEASE
     Dates: start: 20100501, end: 20110423

REACTIONS (8)
  - SERUM SICKNESS [None]
  - ABDOMINAL PAIN [None]
  - ARTHRALGIA [None]
  - JOINT SWELLING [None]
  - ABDOMINAL ADHESIONS [None]
  - VOMITING [None]
  - INTESTINAL OBSTRUCTION [None]
  - RASH [None]
